FAERS Safety Report 14986934 (Version 10)
Quarter: 2023Q4

REPORT INFORMATION
  Report Type: Spontaneous
  Country: JP (occurrence: JP)
  Receive Date: 20180608
  Receipt Date: 20231023
  Transmission Date: 20240110
  Serious: Yes (Death, Life-Threatening, Hospitalization, Other)
  Sender: FDA-Public Use
  Company Number: JP-BRISTOL-MYERS SQUIBB COMPANY-BMS-2018-053094

PATIENT
  Age: 79 Year
  Sex: Male
  Weight: 51.9 kg

DRUGS (4)
  1. OPDIVO [Suspect]
     Active Substance: NIVOLUMAB
     Indication: Gastric cancer
     Dosage: 3 MILLIGRAM/KILOGRAM, Q2WK
     Route: 041
     Dates: start: 20180323, end: 201805
  2. OPDIVO [Suspect]
     Active Substance: NIVOLUMAB
     Dosage: 175 MILLIGRAM
     Route: 041
     Dates: start: 20180510, end: 20180510
  3. PREDNISOLONE [Suspect]
     Active Substance: PREDNISOLONE
     Indication: Clostridium difficile colitis
     Dosage: 5 MILLIGRAM
     Route: 048
  4. PREDNISOLONE [Suspect]
     Active Substance: PREDNISOLONE
     Indication: Product used for unknown indication
     Dosage: 50 MILLIGRAM
     Route: 048
     Dates: start: 20180517

REACTIONS (3)
  - Clostridium difficile colitis [Fatal]
  - Thrombocytopenia [Not Recovered/Not Resolved]
  - Prescribed overdose [Unknown]

NARRATIVE: CASE EVENT DATE: 20180514
